FAERS Safety Report 6802195-9 (Version None)
Quarter: 2010Q2

REPORT INFORMATION
  Report Type: 
  Country: None (occurrence: None)
  Receive Date: 20100629
  Receipt Date: 20080213
  Transmission Date: 20101027
  Serious: Yes (Other)
  Sender: FDA-Public Use
  Company Number: US-PFIZER INC-2006114682

PATIENT
  Sex: Female
  Weight: 90 kg

DRUGS (15)
  1. BEXTRA [Suspect]
     Indication: ARTHRITIS
     Route: 048
     Dates: start: 20030604
  2. BEXTRA [Suspect]
     Indication: ARTHRALGIA
  3. ECOTRIN [Concomitant]
  4. CALTRATE [Concomitant]
  5. SYNTHROID [Concomitant]
  6. QUININE SULFATE [Concomitant]
  7. LISINOPRIL [Concomitant]
  8. ZOCOR [Concomitant]
  9. ZYRTEC [Concomitant]
  10. DITROPAN XL [Concomitant]
  11. NEXIUM [Concomitant]
  12. VITAMIN B-12 [Concomitant]
  13. VITAMIN C [Concomitant]
  14. VITAMIN E [Concomitant]
  15. IRON [Concomitant]

REACTIONS (1)
  - RENAL FAILURE CHRONIC [None]
